FAERS Safety Report 20514436 (Version 1)
Quarter: 2022Q1

REPORT INFORMATION
  Report Type: Spontaneous
  Country: US (occurrence: US)
  Receive Date: 20220224
  Receipt Date: 20220224
  Transmission Date: 20220423
  Serious: No
  Sender: FDA-Public Use
  Company Number: US-AMERICAN REGENT INC-2021001295

PATIENT
  Sex: Female

DRUGS (4)
  1. ESTRADIOL VALERATE [Suspect]
     Active Substance: ESTRADIOL VALERATE
     Indication: Product used for unknown indication
     Dosage: 0.1 MILLILITER
     Route: 065
     Dates: start: 20210505, end: 20210505
  2. ESTRADIOL VALERATE [Suspect]
     Active Substance: ESTRADIOL VALERATE
     Dosage: 0.1 MILLILITER
     Route: 065
     Dates: start: 202105, end: 202105
  3. ESTRADIOL VALERATE [Suspect]
     Active Substance: ESTRADIOL VALERATE
     Dosage: 0.2 MILLILITER
     Route: 065
     Dates: start: 202105, end: 202105
  4. ESTRADIOL VALERATE [Suspect]
     Active Substance: ESTRADIOL VALERATE
     Dosage: 0.2 MILLILITER
     Route: 065
     Dates: start: 202105, end: 202105

REACTIONS (6)
  - Palpitations [Unknown]
  - Vaginal disorder [Unknown]
  - Uterine pain [Unknown]
  - Nipple pain [Unknown]
  - Alopecia [Unknown]
  - Pruritus [Recovered/Resolved]

NARRATIVE: CASE EVENT DATE: 20210501
